FAERS Safety Report 5025778-8 (Version None)
Quarter: 2006Q2

REPORT INFORMATION
  Report Type: 
  Country: None (occurrence: None)
  Receive Date: 20060427
  Receipt Date: 20050406
  Transmission Date: 20061013
  Serious: Yes (Other)
  Sender: FDA-Public Use
  Company Number: 2005045427

PATIENT
  Age: 57 Year
  Sex: Male

DRUGS (4)
  1. ZITHROMAX [Suspect]
     Indication: BRONCHITIS
     Dosage: 500 MG (500 MG, 1 IN 1 D), ORAL
     Route: 048
  2. SERETIDE MITE [Concomitant]
  3. BUDESONIDE [Concomitant]
  4. SALBUTAMOL (SALBUTAMOL) [Concomitant]

REACTIONS (1)
  - STEVENS-JOHNSON SYNDROME [None]
